FAERS Safety Report 7712290-8 (Version None)
Quarter: 2011Q3

REPORT INFORMATION
  Report Type: 
  Country: None (occurrence: None)
  Receive Date: 20110826
  Receipt Date: 20110821
  Transmission Date: 20111222
  Serious: Yes (Life-Threatening, Other)
  Sender: FDA-Public Use
  Company Number: FR-ALEXION PHARMACEUTICALS INC.-A201101283

PATIENT
  Sex: Female

DRUGS (9)
  1. FENTANYL [Concomitant]
     Dosage: UNK
     Dates: start: 20110820
  2. SOLIRIS [Suspect]
     Indication: HAEMOLYTIC URAEMIC SYNDROME
     Dosage: 900 MG, QW
     Route: 042
     Dates: start: 20110812
  3. ATARAX [Concomitant]
  4. PIPERACILLIN AND TAZOBACTAM [Concomitant]
     Dosage: UNK
     Dates: start: 20110820
  5. AUGMENTIN '125' [Concomitant]
     Dosage: UNK
     Dates: start: 20110820
  6. NEXIUM [Concomitant]
     Dosage: UNK
     Dates: start: 20110808
  7. IPNOVEL [Concomitant]
     Dosage: UNK
     Dates: start: 20110820
  8. ACETAMINOPHEN [Concomitant]
  9. LASIX [Concomitant]

REACTIONS (3)
  - ANAL ULCER [None]
  - RECTAL HAEMORRHAGE [None]
  - COLITIS [None]
